FAERS Safety Report 11615295 (Version 1)
Quarter: 2015Q4

REPORT INFORMATION
  Report Type: Spontaneous
  Country: US (occurrence: None)
  Receive Date: 20151008
  Receipt Date: 20151008
  Transmission Date: 20160304
  Serious: Yes (Other)
  Sender: FDA-Public Use
  Company Number: None

PATIENT
  Age: 53 Year
  Sex: Male
  Weight: 95.26 kg

DRUGS (3)
  1. EYE DROPS [Concomitant]
     Active Substance: TETRAHYDROZOLINE HYDROCHLORIDE
  2. CIALIS [Suspect]
     Active Substance: TADALAFIL
     Indication: ERECTILE DYSFUNCTION
     Dosage: 1
     Dates: start: 20111001, end: 20151001
  3. VALTREX [Concomitant]
     Active Substance: VALACYCLOVIR HYDROCHLORIDE

REACTIONS (9)
  - Skin ulcer [None]
  - Impaired healing [None]
  - Eye haemorrhage [None]
  - Insomnia [None]
  - Skin burning sensation [None]
  - Vision blurred [None]
  - Photosensitivity reaction [None]
  - Vitreous floaters [None]
  - Vitreous detachment [None]

NARRATIVE: CASE EVENT DATE: 20150302
